FAERS Safety Report 5634555-6 (Version None)
Quarter: 2008Q1

REPORT INFORMATION
  Report Type: 
  Country: None (occurrence: None)
  Receive Date: 20080222
  Receipt Date: 20080218
  Transmission Date: 20080703
  Serious: Yes (Death, Hospitalization)
  Sender: FDA-Public Use
  Company Number: PHRM2008FR00853

PATIENT
  Sex: Male

DRUGS (3)
  1. METHOTREXATE [Suspect]
     Dosage: 1 G DAILY
  2. GLEEVEC [Suspect]
     Indication: ACUTE LYMPHOCYTIC LEUKAEMIA
     Route: 048
  3. GLEEVEC [Suspect]
     Dosage: 400 MG DAILY
     Route: 048

REACTIONS (4)
  - BONE MARROW FAILURE [None]
  - DERMATITIS EXFOLIATIVE [None]
  - RENAL TUBULAR NECROSIS [None]
  - STOMATITIS [None]
